FAERS Safety Report 7820544-X (Version None)
Quarter: 2011Q4

REPORT INFORMATION
  Report Type: 
  Country: None (occurrence: None)
  Receive Date: 20111018
  Receipt Date: 20111011
  Transmission Date: 20120403
  Serious: Yes (Other)
  Sender: FDA-Public Use
  Company Number: PHEH2011US06603

PATIENT
  Sex: Male

DRUGS (5)
  1. RITALIN LA [Suspect]
     Dosage: 20 MG, PRN
  2. FOCALIN XR [Suspect]
     Dosage: 10 MG, UNK
  3. FOCALIN XR [Suspect]
  4. CONCERTA [Suspect]
     Dosage: 108 MG, UNK
  5. FOCALIN XR [Suspect]
     Dosage: 20 MG, UNK

REACTIONS (2)
  - LOSS OF CONSCIOUSNESS [None]
  - DRUG WITHDRAWAL SYNDROME [None]
